FAERS Safety Report 16441925 (Version 1)
Quarter: 2019Q2

REPORT INFORMATION
  Report Type: Report from Study
  Country: None (occurrence: US)
  Receive Date: 20190617
  Receipt Date: 20190617
  Transmission Date: 20190711
  Serious: No
  Sender: FDA-Public Use
  Company Number: US-US WORLDMEDS, LLC-USW201810-001445

PATIENT
  Age: 60 Year
  Sex: Male
  Weight: 179.1 kg

DRUGS (22)
  1. APOKYN [Suspect]
     Active Substance: APOMORPHINE HYDROCHLORIDE
  2. MELOXICAM. [Concomitant]
     Active Substance: MELOXICAM
  3. EUFLEXXA [Concomitant]
     Active Substance: HYALURONATE SODIUM
     Indication: ARTHRALGIA
  4. ENTACAPONE. [Concomitant]
     Active Substance: ENTACAPONE
  5. AMLODIPINE [Concomitant]
     Active Substance: AMLODIPINE BESYLATE
  6. APOKYN [Suspect]
     Active Substance: APOMORPHINE HYDROCHLORIDE
     Indication: PARKINSON^S DISEASE
     Route: 058
     Dates: start: 20180927
  7. SIMVASTATIN. [Concomitant]
     Active Substance: SIMVASTATIN
  8. FLECAINIDE [Concomitant]
     Active Substance: FLECAINIDE
  9. BENADRYL [Concomitant]
     Active Substance: DIPHENHYDRAMINE HYDROCHLORIDE
  10. APOKYN [Suspect]
     Active Substance: APOMORPHINE HYDROCHLORIDE
  11. METOPROLOL. [Concomitant]
     Active Substance: METOPROLOL
  12. APOKYN [Suspect]
     Active Substance: APOMORPHINE HYDROCHLORIDE
     Route: 058
     Dates: start: 20180928
  13. FENOFIBRATE. [Concomitant]
     Active Substance: FENOFIBRATE
  14. VICODIN [Concomitant]
     Active Substance: ACETAMINOPHEN\HYDROCODONE BITARTRATE
     Dosage: 10-325 MG 3 PILLS, THREE TIMES A DAY
  15. CARBIDOPA/LEVODOPA [Concomitant]
     Active Substance: CARBIDOPA\LEVODOPA
     Dosage: 50/200 2 TABLETS FOR 6 TIMES A DAY Q3 HOURS.
  16. VALSARTAN. [Concomitant]
     Active Substance: VALSARTAN
  17. DOXAZOSIN [Concomitant]
     Active Substance: DOXAZOSIN\DOXAZOSIN MESYLATE
  18. SPIRONOLACTONE. [Concomitant]
     Active Substance: SPIRONOLACTONE
  19. HUMULOG INSULIN [Concomitant]
  20. XARELTO [Concomitant]
     Active Substance: RIVAROXABAN
  21. AZILECT [Concomitant]
     Active Substance: RASAGILINE MESYLATE
  22. LANTUS [Concomitant]
     Active Substance: INSULIN GLARGINE

REACTIONS (8)
  - Arthralgia [Recovered/Resolved]
  - Drug ineffective [Recovered/Resolved]
  - Hyperhidrosis [Recovered/Resolved]
  - Pain in extremity [Recovered/Resolved]
  - Groin pain [Recovered/Resolved]
  - Somnolence [Recovered/Resolved]
  - Heart rate irregular [Recovered/Resolved]
  - Tremor [Recovered/Resolved]

NARRATIVE: CASE EVENT DATE: 20180927
